FAERS Safety Report 10598095 (Version 3)
Quarter: 2014Q4

REPORT INFORMATION
  Report Type: Spontaneous
  Country: US (occurrence: None)
  Receive Date: 20141119
  Receipt Date: 20141217
  Transmission Date: 20150529
  Serious: Yes (Hospitalization, Other)
  Sender: FDA-Public Use
  Company Number: 2014JUB00185

PATIENT
  Age: 74 Year
  Sex: Female
  Weight: 80.4 kg

DRUGS (13)
  1. IODOQUINOL-HC [Concomitant]
  2. CARAFATE [Suspect]
     Active Substance: SUCRALFATE
     Route: 048
     Dates: end: 2014
  3. MIDRIN CAPSULE [Concomitant]
  4. PREDNISONE. [Concomitant]
     Active Substance: PREDNISONE
  5. XANAX [Concomitant]
     Active Substance: ALPRAZOLAM
  6. ANUSOL-HC [Concomitant]
  7. PROCTOFOAM HC [Concomitant]
     Active Substance: HYDROCORTISONE ACETATE\PRAMOXINE HYDROCHLORIDE
  8. MECLIZINE [Suspect]
     Active Substance: MECLIZINE\MECLIZINE HYDROCHLORIDE
     Indication: DIZZINESS
     Route: 048
     Dates: start: 2013
  9. VERAPAMIL [Concomitant]
     Active Substance: VERAPAMIL HYDROCHLORIDE
  10. TYLENOL EXTRA STRENGTH [Concomitant]
     Active Substance: ACETAMINOPHEN
  11. VITAMIN B12 [Concomitant]
     Active Substance: CYANOCOBALAMIN
  12. TRIAMCINOLONE [Concomitant]
     Active Substance: TRIAMCINOLONE
  13. TEMOVATE [Concomitant]
     Active Substance: CLOBETASOL PROPIONATE

REACTIONS (33)
  - Product quality issue [None]
  - Abdominal discomfort [None]
  - Somnolence [None]
  - Lacrimation increased [None]
  - Migraine [None]
  - Dehydration [None]
  - Lactose intolerance [None]
  - Mydriasis [None]
  - Dizziness [None]
  - Weight decreased [None]
  - Nausea [None]
  - Hypersensitivity [None]
  - Hyperhidrosis [None]
  - Rhinorrhoea [None]
  - Coeliac disease [None]
  - Decreased activity [None]
  - Syncope [None]
  - Circulatory collapse [None]
  - Malaise [None]
  - Product substitution issue [None]
  - Abdominal pain upper [None]
  - Fatigue [None]
  - Nasopharyngitis [None]
  - Gastric ulcer [None]
  - Influenza like illness [None]
  - Cold sweat [None]
  - Swollen tongue [None]
  - Stomatitis [None]
  - Eyelid oedema [None]
  - Blood aluminium increased [None]
  - Pupil fixed [None]
  - Paranasal cyst [None]
  - Tension headache [None]

NARRATIVE: CASE EVENT DATE: 2013
